FAERS Safety Report 5673852-5 (Version None)
Quarter: 2008Q2

REPORT INFORMATION
  Report Type: 
  Country: None (occurrence: None)
  Receive Date: 20080226
  Receipt Date: 20070306
  Transmission Date: 20081010
  Serious: No
  Sender: FDA-Public Use
  Company Number: 467349

PATIENT
  Age: 19 Year
  Sex: Female
  Weight: 71.7 kg

DRUGS (3)
  1. ACCUTANE [Suspect]
     Indication: ACNE CYSTIC
     Dosage: 40 MG 2 PER DAY ORAL
     Route: 048
     Dates: start: 19980307, end: 19980521
  2. CONTRACEPTIVE DRUG NOS (CONTRACEPTIVE NOS) [Concomitant]
  3. TRIAMCINOLON OINTMENT (TRIAMCINOLONE ACETONIDE) [Concomitant]

REACTIONS (7)
  - CERVICAL DYSPLASIA [None]
  - COLITIS [None]
  - COLITIS ULCERATIVE [None]
  - DEPRESSION [None]
  - INFLAMMATORY BOWEL DISEASE [None]
  - IRRITABLE BOWEL SYNDROME [None]
  - PANIC DISORDER [None]
